FAERS Safety Report 5631178-X (Version None)
Quarter: 2008Q1

REPORT INFORMATION
  Report Type: 
  Country: None (occurrence: None)
  Receive Date: 20080219
  Receipt Date: 20080207
  Transmission Date: 20080703
  Serious: Yes (Other)
  Sender: FDA-Public Use
  Company Number: US-PFIZER INC-2008013279

PATIENT
  Sex: Female

DRUGS (2)
  1. LYRICA [Suspect]
  2. CYCLOBENZAPRINE HCL [Suspect]

REACTIONS (2)
  - DRUG DEPENDENCE [None]
  - PAIN [None]
